FAERS Safety Report 9857432 (Version 1)
Quarter: 2014Q1

REPORT INFORMATION
  Report Type: Report from Study
  Country: GB (occurrence: GB)
  Receive Date: 20140131
  Receipt Date: 20140131
  Transmission Date: 20141002
  Serious: Yes (Death)
  Sender: FDA-Public Use
  Company Number: GB-ROCHE-1340166

PATIENT
  Age: 83 Year
  Sex: Female

DRUGS (2)
  1. RITUXIMAB [Suspect]
     Indication: RHEUMATOID ARTHRITIS
     Dosage: LAST DOSE PRIOR TO SAE 15 MAR 2011
     Route: 065
     Dates: start: 20071210
  2. METHOTREXATE [Concomitant]
     Route: 065
     Dates: start: 201201

REACTIONS (1)
  - Gastrointestinal haemorrhage [Fatal]
